FAERS Safety Report 6420822-5 (Version None)
Quarter: 2009Q4

REPORT INFORMATION
  Report Type: 
  Country: None (occurrence: None)
  Receive Date: 20091030
  Receipt Date: 20091023
  Transmission Date: 20100525
  Serious: Yes (Death)
  Sender: FDA-Public Use
  Company Number: RS-SANOFI-SYNTHELABO-A01200909704

PATIENT
  Sex: Female

DRUGS (7)
  1. GLIMEPIRIDE [Concomitant]
     Dates: start: 20090210
  2. CILAZAPRIL [Concomitant]
     Dates: start: 20090120
  3. METOPROLOL [Concomitant]
     Dates: start: 20090120
  4. 5-FLUOROURACIL [Suspect]
     Indication: COLORECTAL CANCER
     Dosage: 3700 MG
     Route: 041
  5. OXALIPLATIN [Suspect]
     Indication: COLORECTAL CANCER
     Dosage: 150 MG
     Route: 041
  6. AVE5026 OR PLACEBO [Concomitant]
     Indication: THROMBOSIS PROPHYLAXIS
     Dates: start: 20090810
  7. METFORMIN HCL [Concomitant]
     Dates: start: 20090210

REACTIONS (1)
  - DEATH [None]
